FAERS Safety Report 13571884 (Version 1)
Quarter: 2017Q2

REPORT INFORMATION
  Report Type: Spontaneous
  Country: US (occurrence: US)
  Receive Date: 20170523
  Receipt Date: 20170523
  Transmission Date: 20170830
  Serious: No
  Sender: FDA-Public Use
  Company Number: US-DRREDDYS-USA/USA/16/0083781

PATIENT
  Sex: Male

DRUGS (1)
  1. ZENATANE [Suspect]
     Active Substance: ISOTRETINOIN
     Indication: ACNE
     Route: 048
     Dates: start: 20160616, end: 20160914

REACTIONS (4)
  - Musculoskeletal pain [Recovered/Resolved]
  - Tension headache [Recovered/Resolved]
  - Rash [Recovered/Resolved]
  - Night blindness [Recovered/Resolved]
